FAERS Safety Report 24799345 (Version 1)
Quarter: 2025Q1

REPORT INFORMATION
  Report Type: Spontaneous
  Country: GR (occurrence: GR)
  Receive Date: 20250102
  Receipt Date: 20250102
  Transmission Date: 20250408
  Serious: Yes (Hospitalization)
  Sender: ROCHE
  Company Number: GR-BoehringerIngelheim-2024-BI-070822

PATIENT
  Age: 57 Year
  Sex: Male

DRUGS (1)
  1. ALTEPLASE [Suspect]
     Active Substance: ALTEPLASE
     Indication: Ischaemic stroke
     Route: 042

REACTIONS (5)
  - Drug ineffective [Unknown]
  - Pneumonia pseudomonal [Recovered/Resolved]
  - Enterococcal infection [Recovered/Resolved]
  - Enterococcal bacteraemia [Recovered/Resolved]
  - Catheter site infection [Recovered/Resolved]
